FAERS Safety Report 16792889 (Version 5)
Quarter: 2019Q4

REPORT INFORMATION
  Report Type: Report from Study
  Country: None (occurrence: TR)
  Receive Date: 20190910
  Receipt Date: 20191113
  Transmission Date: 20200122
  Serious: Yes (Death, Hospitalization)
  Sender: FDA-Public Use
  Company Number: TR-ABBVIE-19K-161-2918753-00

PATIENT
  Age: 77 Year
  Sex: Female

DRUGS (2)
  1. DUODOPA [Suspect]
     Active Substance: CARBIDOPA\LEVODOPA
     Indication: PARKINSON^S DISEASE
     Dosage: MORNING DOSE(ML):5.50 CONTINUES DOSE(ML):2.90 EXTRA DOSE(ML):1.00
     Route: 050
     Dates: start: 20170616, end: 20190908
  2. DUODOPA [Suspect]
     Active Substance: CARBIDOPA\LEVODOPA
     Dosage: MORNING DOSE(ML):5.50 CONTINUES DOSE(ML):2.90 EXTRA DOSE(ML):1.00
     Route: 050
     Dates: start: 20190917

REACTIONS (8)
  - Constipation [Unknown]
  - Stoma site infection [Not Recovered/Not Resolved]
  - Stoma site discharge [Not Recovered/Not Resolved]
  - Respiratory distress [Not Recovered/Not Resolved]
  - Cardiac arrest [Fatal]
  - Haemoglobin decreased [Not Recovered/Not Resolved]
  - Hypophagia [Not Recovered/Not Resolved]
  - Pneumonia [Not Recovered/Not Resolved]

NARRATIVE: CASE EVENT DATE: 201909
